FAERS Safety Report 24392381 (Version 1)
Quarter: 2024Q4

REPORT INFORMATION
  Report Type: Spontaneous
  Country: KR (occurrence: KR)
  Receive Date: 20241003
  Receipt Date: 20241003
  Transmission Date: 20250115
  Serious: Yes (Death)
  Sender: DAIICHI
  Company Number: KR-DSJP-DS-2024-101018-KR

PATIENT
  Age: 46 Year
  Sex: Female

DRUGS (1)
  1. TRASTUZUMAB DERUXTECAN [Suspect]
     Active Substance: TRASTUZUMAB DERUXTECAN
     Indication: Breast cancer
     Dosage: 300 MG
     Route: 042
     Dates: start: 20240826, end: 20240826

REACTIONS (1)
  - Death [Fatal]

NARRATIVE: CASE EVENT DATE: 20240907
